FAERS Safety Report 13713164 (Version 4)
Quarter: 2018Q2

REPORT INFORMATION
  Report Type: Report from Study
  Country: DE (occurrence: DE)
  Receive Date: 20170704
  Receipt Date: 20180525
  Transmission Date: 20180711
  Serious: Yes (Hospitalization, Other)
  Sender: FDA-Public Use
  Company Number: DE-ELI_LILLY_AND_COMPANY-DE201706010218

PATIENT
  Age: 50 Year
  Sex: Male
  Weight: 63 kg

DRUGS (1)
  1. IXEKIZUMAB [Suspect]
     Active Substance: IXEKIZUMAB
     Indication: PSORIASIS
     Dosage: 80 MG, UNKNOWN
     Route: 058
     Dates: start: 20170602, end: 20170617

REACTIONS (18)
  - Hemiplegia [Recovered/Resolved]
  - Psoriatic arthropathy [Unknown]
  - C-reactive protein increased [Recovered/Resolved]
  - Blood ethanol increased [Unknown]
  - Hepatomegaly [Recovered/Resolved]
  - Fatigue [Recovered/Resolved]
  - Leukocytosis [Recovered/Resolved]
  - Malaise [Recovering/Resolving]
  - Weight decreased [Unknown]
  - Blood urea decreased [Unknown]
  - Drug hypersensitivity [Unknown]
  - Psoriasis [Recovered/Resolved]
  - Pancreatic steatosis [Recovered/Resolved]
  - Injection site warmth [Recovering/Resolving]
  - Arthralgia [Recovered/Resolved]
  - Injection site erythema [Recovered/Resolved]
  - Injection site swelling [Recovered/Resolved]
  - Blood glucose increased [Unknown]

NARRATIVE: CASE EVENT DATE: 20170617
